FAERS Safety Report 7422324-6 (Version None)
Quarter: 2011Q2

REPORT INFORMATION
  Report Type: 
  Country: None (occurrence: None)
  Receive Date: 20110419
  Receipt Date: 20110411
  Transmission Date: 20111010
  Serious: No
  Sender: FDA-Public Use
  Company Number: US-BIOGENIDEC-2010BI017601

PATIENT
  Age: 40 Year
  Sex: Female

DRUGS (1)
  1. TYSABRI [Suspect]
     Indication: MULTIPLE SCLEROSIS
     Route: 042
     Dates: start: 20080219

REACTIONS (11)
  - MUSCULOSKELETAL PAIN [None]
  - BACK PAIN [None]
  - NAUSEA [None]
  - INFUSION SITE PAIN [None]
  - MOBILITY DECREASED [None]
  - CHEST PAIN [None]
  - DIZZINESS [None]
  - CHEST DISCOMFORT [None]
  - PALLOR [None]
  - HYPERHIDROSIS [None]
  - PRESYNCOPE [None]
